FAERS Safety Report 5613153-4 (Version None)
Quarter: 2008Q1

REPORT INFORMATION
  Report Type: 
  Country: None (occurrence: None)
  Receive Date: 20080129
  Receipt Date: 20080114
  Transmission Date: 20080703
  Serious: Yes (Death)
  Sender: FDA-Public Use
  Company Number: 2008S1000032

PATIENT
  Age: 74 Year
  Sex: Male

DRUGS (8)
  1. ROXANOL [Suspect]
     Dosage: PO
     Route: 048
     Dates: end: 20060101
  2. DARVON [Suspect]
     Dosage: PO
     Route: 048
  3. ORAMORPH SR [Suspect]
     Dosage: PO
     Route: 048
     Dates: end: 20060101
  4. AMITRIPTYLINE AND PERPHENAZINE [Suspect]
     Dosage: PO
     Route: 048
     Dates: end: 20060101
  5. VENLAFAXINE HCL [Suspect]
     Dosage: PO
     Route: 048
     Dates: end: 20060101
  6. CLONAZEPAM [Suspect]
     Dosage: PO
     Route: 048
  7. L-DOPA AND RELATED [Suspect]
     Dosage: PO
     Route: 048
  8. ACETAMINOPHEN [Suspect]
     Dosage: PO
     Route: 048

REACTIONS (3)
  - CARDIAC ARREST [None]
  - COMPLETED SUICIDE [None]
  - RESPIRATORY ARREST [None]
